FAERS Safety Report 6676653-4 (Version None)
Quarter: 2010Q2

REPORT INFORMATION
  Report Type: 
  Country: None (occurrence: None)
  Receive Date: 20100412
  Receipt Date: 20100406
  Transmission Date: 20101027
  Serious: Yes (Death, Hospitalization, Disabling, Other)
  Sender: FDA-Public Use
  Company Number: PHHY2010BR21392

PATIENT
  Sex: Female

DRUGS (1)
  1. EXELON [Suspect]
     Indication: DEMENTIA ALZHEIMER'S TYPE

REACTIONS (16)
  - BONE OPERATION [None]
  - CEREBROVASCULAR ACCIDENT [None]
  - COMA [None]
  - FALL [None]
  - FEELING ABNORMAL [None]
  - FEMUR FRACTURE [None]
  - GENERAL PHYSICAL HEALTH DETERIORATION [None]
  - HALLUCINATION [None]
  - HYPERTENSION [None]
  - INFLUENZA [None]
  - LUNG DISORDER [None]
  - MEMORY IMPAIRMENT [None]
  - PROSTHESIS IMPLANTATION [None]
  - RENAL IMPAIRMENT [None]
  - WALKING DISABILITY [None]
  - WHEELCHAIR USER [None]
